FAERS Safety Report 5825032-8 (Version None)
Quarter: 2008Q3

REPORT INFORMATION
  Report Type: 
  Country: None (occurrence: None)
  Receive Date: 20080725
  Receipt Date: 20080725
  Transmission Date: 20090109
  Serious: Yes (Other)
  Sender: FDA-Public Use
  Company Number: None

PATIENT
  Sex: Female
  Weight: 49.8957 kg

DRUGS (1)
  1. COREG [Suspect]
     Indication: CARDIOMYOPATHY
     Dosage: 12.5 MG BID PO
     Route: 048
     Dates: start: 20080623

REACTIONS (2)
  - MULTIPLE SCLEROSIS RELAPSE [None]
  - NAUSEA [None]
